FAERS Safety Report 8514636-X (Version None)
Quarter: 2012Q3

REPORT INFORMATION
  Report Type: 
  Country: None (occurrence: None)
  Receive Date: 20120717
  Receipt Date: 20120713
  Transmission Date: 20120928
  Serious: No
  Sender: FDA-Public Use
  Company Number: US-TEVA-348551USA

PATIENT
  Sex: Female
  Weight: 77.18 kg

DRUGS (2)
  1. PLAN B ONE-STEP [Suspect]
     Indication: POST COITAL CONTRACEPTION
     Dosage: 1.5 MILLIGRAM;
     Route: 048
     Dates: start: 20120708, end: 20120708
  2. PROZAC [Concomitant]
     Indication: ANXIETY
     Dosage: 20 MILLIGRAM;
     Route: 048
     Dates: start: 20111001

REACTIONS (2)
  - VOMITING [None]
  - MENSTRUATION IRREGULAR [None]
